FAERS Safety Report 15468339 (Version 12)
Quarter: 2022Q3

REPORT INFORMATION
  Report Type: Report from Study
  Country: DE (occurrence: DE)
  Receive Date: 20181005
  Receipt Date: 20220913
  Transmission Date: 20221027
  Serious: Yes (Other)
  Sender: FDA-Public Use
  Company Number: PHHY2018DE116592

PATIENT
  Sex: Female
  Weight: 66 kg

DRUGS (21)
  1. GILENYA [Suspect]
     Active Substance: FINGOLIMOD HYDROCHLORIDE
     Indication: Multiple sclerosis
     Dosage: 0.5 MG, QD
     Route: 048
     Dates: start: 20161026
  2. PREVIVA SANOL [Concomitant]
     Indication: Contraception
     Dosage: UNK, QD
     Route: 065
     Dates: start: 20140128
  3. CETIRIZINE HYDROCHLORIDE [Concomitant]
     Active Substance: CETIRIZINE HYDROCHLORIDE
     Indication: Seasonal allergy
     Dosage: UNK UNK, PRN
     Route: 065
     Dates: start: 20150408
  4. LEVOTHYROXINE SODIUM [Concomitant]
     Active Substance: LEVOTHYROXINE SODIUM
     Indication: Hypothyroidism
     Dosage: 75 MG, QD
     Route: 065
     Dates: start: 20160419
  5. NABIXIMOLS [Concomitant]
     Active Substance: NABIXIMOLS
     Indication: Neuralgia
     Dosage: 5 OT (PUFF), QD
     Route: 065
     Dates: start: 20160923
  6. LYSINE [Concomitant]
     Active Substance: LYSINE
     Indication: Prophylaxis
     Dosage: 1000 MG, QD
     Route: 065
     Dates: start: 20170104
  7. PANTOPRAZOLE [Concomitant]
     Active Substance: PANTOPRAZOLE
     Indication: Prophylaxis
     Dosage: 40 MG
     Route: 065
     Dates: start: 20170522, end: 20170526
  8. PANTOPRAZOLE [Concomitant]
     Active Substance: PANTOPRAZOLE
     Dosage: 40 MG
     Route: 065
     Dates: start: 20180423, end: 20180427
  9. POTASSIUM [Concomitant]
     Active Substance: POTASSIUM
     Indication: Product used for unknown indication
     Dosage: 1 DOSAGE FORM, QD
     Route: 065
     Dates: start: 20170522, end: 20170529
  10. METHYLPREDNISOLONE [Concomitant]
     Active Substance: METHYLPREDNISOLONE
     Indication: Multiple sclerosis relapse
     Dosage: 1000 MG
     Route: 065
     Dates: start: 20170522, end: 20170526
  11. METHYLPREDNISOLONE [Concomitant]
     Active Substance: METHYLPREDNISOLONE
     Dosage: 1000 MG
     Route: 065
     Dates: start: 20180423, end: 20180427
  12. METHYLPREDNISOLONE [Concomitant]
     Active Substance: METHYLPREDNISOLONE
     Dosage: 1000 MG
     Route: 065
     Dates: start: 20190708, end: 20190712
  13. ENOXAPARIN SODIUM [Concomitant]
     Active Substance: ENOXAPARIN SODIUM
     Indication: Thrombosis prophylaxis
     Dosage: 40 MG, UNK
     Route: 065
     Dates: start: 20170522, end: 20170526
  14. ENOXAPARIN SODIUM [Concomitant]
     Active Substance: ENOXAPARIN SODIUM
     Dosage: 40 MG, UNK
     Route: 065
     Dates: start: 20180423, end: 20180427
  15. BENZTHIAZIDE\TRIAMTERENE [Concomitant]
     Active Substance: BENZTHIAZIDE\TRIAMTERENE
     Indication: Prophylaxis
     Dosage: 1 DF
     Route: 065
     Dates: start: 20170522, end: 20170529
  16. BENZTHIAZIDE\TRIAMTERENE [Concomitant]
     Active Substance: BENZTHIAZIDE\TRIAMTERENE
     Dosage: 1 DF
     Route: 065
     Dates: start: 20180423, end: 20180427
  17. ENOXAPARIN SODIUM [Concomitant]
     Active Substance: ENOXAPARIN SODIUM
     Indication: Thrombosis prophylaxis
     Dosage: 40 MG
     Route: 065
     Dates: start: 20180423, end: 20180427
  18. DYAZIDE [Concomitant]
     Active Substance: HYDROCHLOROTHIAZIDE\TRIAMTERENE
     Indication: Prophylaxis
     Dosage: 1 DOSAGE FORM
     Route: 065
     Dates: start: 20170522, end: 20170529
  19. LEVOTHYROXINE SODIUM [Concomitant]
     Active Substance: LEVOTHYROXINE SODIUM
     Indication: Hypothyroidism
     Dosage: 75 MG, QD
     Route: 065
     Dates: start: 20160419
  20. MARVELON [Concomitant]
     Active Substance: DESOGESTREL\ETHINYL ESTRADIOL
     Indication: Contraception
     Dosage: 1 DF, QD
     Route: 065
     Dates: start: 20140128
  21. EUDORLIN [Concomitant]
     Indication: Migraine
     Dosage: 400 MG (AS NEEDED)
     Route: 065
     Dates: start: 20040101

REACTIONS (6)
  - Cervical dysplasia [Recovered/Resolved]
  - Lymphopenia [Recovered/Resolved]
  - Lymphopenia [Recovered/Resolved]
  - Cervix carcinoma stage 0 [Recovered/Resolved]
  - Inflammation [Unknown]
  - White blood cell count decreased [Unknown]

NARRATIVE: CASE EVENT DATE: 20161214
